FAERS Safety Report 5897569-7 (Version None)
Quarter: 2008Q3

REPORT INFORMATION
  Report Type: 
  Country: None (occurrence: None)
  Receive Date: 20080829
  Receipt Date: 20080507
  Transmission Date: 20090109
  Serious: Yes (Other)
  Sender: FDA-Public Use
  Company Number: 027524

PATIENT
  Age: 22 Year
  Sex: Female
  Weight: 57.6 kg

DRUGS (3)
  1. PLAN B [Suspect]
     Indication: CONTRACEPTION
     Dosage: 1 TABLET, ORAL, 1 TABLET, Q12HR, ORAL
     Route: 048
     Dates: start: 20050501, end: 20050501
  2. PLAN B [Suspect]
     Indication: CONTRACEPTION
     Dosage: 1 TABLET, ORAL, 1 TABLET, Q12HR, ORAL
     Route: 048
     Dates: start: 20080428, end: 20080428
  3. . [Concomitant]

REACTIONS (3)
  - DRUG EXPOSURE DURING PREGNANCY [None]
  - ECTOPIC PREGNANCY [None]
  - MENSTRUATION IRREGULAR [None]
